FAERS Safety Report 8817176 (Version 1)
Quarter: 2012Q4

REPORT INFORMATION
  Report Type: Spontaneous
  Country: US (occurrence: None)
  Receive Date: 20121003
  Receipt Date: 20121003
  Transmission Date: 20130627
  Serious: Yes (Other)
  Sender: FDA-Public Use
  Company Number: None

PATIENT
  Age: 82 Year
  Sex: Male
  Weight: 89 kg

DRUGS (5)
  1. WARFARIN [Suspect]
     Indication: ATRIAL FIBRILLATION
     Route: 048
  2. FLOMAX [Concomitant]
  3. CITALOPRAM [Concomitant]
  4. TIMOLOL OPHT. SOL [Concomitant]
  5. LATANOPROST OPHT SOL. [Concomitant]

REACTIONS (4)
  - Upper respiratory tract infection [None]
  - Haematoma [None]
  - Prothrombin time prolonged [None]
  - International normalised ratio increased [None]
